FAERS Safety Report 4637961-1 (Version None)
Quarter: 2005Q2

REPORT INFORMATION
  Report Type: 
  Country: None (occurrence: None)
  Receive Date: 20050415
  Receipt Date: 20050405
  Transmission Date: 20051028
  Serious: Yes (Hospitalization)
  Sender: FDA-Public Use
  Company Number: 2005GB00686

PATIENT
  Sex: Male

DRUGS (3)
  1. SEROQUEL [Suspect]
     Dates: end: 20050301
  2. SSRI [Concomitant]
  3. DEPAKOTE [Concomitant]

REACTIONS (2)
  - AGRANULOCYTOSIS [None]
  - LEUKOPENIA [None]
